FAERS Safety Report 12058471 (Version 1)
Quarter: 2016Q1

REPORT INFORMATION
  Report Type: Spontaneous
  Country: US (occurrence: None)
  Receive Date: 20160209
  Receipt Date: 20160209
  Transmission Date: 20160526
  Serious: No
  Sender: FDA-Public Use
  Company Number: None

PATIENT
  Age: 58 Year
  Sex: Male

DRUGS (11)
  1. RIBASPHERE [Suspect]
     Active Substance: RIBAVIRIN
     Indication: HEPATITIS C
     Route: 048
     Dates: start: 20160114
  2. GLIPIZIDE. [Concomitant]
     Active Substance: GLIPIZIDE
  3. PROGRAF [Concomitant]
     Active Substance: TACROLIMUS\TACROLIMUS ANHYDROUS
  4. HARVONI [Suspect]
     Active Substance: LEDIPASVIR\SOFOSBUVIR
     Indication: HEPATITIS C
     Route: 048
     Dates: start: 20150114
  5. AMBIEN [Concomitant]
     Active Substance: ZOLPIDEM TARTRATE
  6. INVOKANA [Concomitant]
     Active Substance: CANAGLIFLOZIN
  7. PROTONIX [Concomitant]
     Active Substance: PANTOPRAZOLE SODIUM
  8. ASPIRIN. [Concomitant]
     Active Substance: ASPIRIN
  9. MAGNESIUM [Concomitant]
     Active Substance: MAGNESIUM
  10. JANUMET XR [Concomitant]
     Active Substance: METFORMIN HYDROCHLORIDE\SITAGLIPTIN PHOSPHATE
  11. LISINOPRIL. [Concomitant]
     Active Substance: LISINOPRIL

REACTIONS (2)
  - Headache [None]
  - Rash [None]

NARRATIVE: CASE EVENT DATE: 201602
